APPROVED DRUG PRODUCT: FLUMAZENIL
Active Ingredient: FLUMAZENIL
Strength: 1MG/10ML (0.1MG/ML)
Dosage Form/Route: INJECTABLE;INJECTION
Application: A076755 | Product #001 | TE Code: AP
Applicant: BAXTER HEALTHCARE CORP
Approved: Oct 12, 2004 | RLD: No | RS: No | Type: RX